FAERS Safety Report 6597193-7 (Version None)
Quarter: 2010Q1

REPORT INFORMATION
  Report Type: 
  Country: None (occurrence: None)
  Receive Date: 20100223
  Receipt Date: 20100212
  Transmission Date: 20100710
  Serious: Yes (Hospitalization, Other)
  Sender: FDA-Public Use
  Company Number: PHBS2005JP02932

PATIENT
  Sex: Female
  Weight: 77 kg

DRUGS (8)
  1. SANDOSTATIN LAR [Suspect]
     Indication: ACROMEGALY
     Dosage: 20 MG/DAY
     Route: 030
     Dates: start: 20040817, end: 20041213
  2. SANDOSTATIN LAR [Suspect]
     Dosage: 10 MG/DAY
     Route: 030
     Dates: start: 20041214
  3. ASPIRIN [Concomitant]
     Indication: CARDIAC FAILURE CHRONIC
     Dates: start: 20021001
  4. GASMOTIN [Concomitant]
     Indication: GASTRITIS
     Dosage: 15 MG/DAY
     Route: 048
     Dates: start: 20001102
  5. MUCOSTA [Concomitant]
     Indication: GASTRITIS
     Dosage: 300 MG/DAY
     Route: 048
     Dates: start: 19970206
  6. STARSIS [Concomitant]
  7. METHYCOBAL [Concomitant]
     Indication: DIABETES MELLITUS
     Dosage: 1500 MG/DAY
     Route: 048
     Dates: start: 19960829
  8. MAGNESIUM OXIDE [Concomitant]
     Dosage: UNK

REACTIONS (5)
  - ARRHYTHMIA [None]
  - BRADYCARDIA [None]
  - CEREBRAL INFARCTION [None]
  - DIZZINESS [None]
  - SICK SINUS SYNDROME [None]
